FAERS Safety Report 6755120-3 (Version None)
Quarter: 2010Q2

REPORT INFORMATION
  Report Type: 
  Country: None (occurrence: None)
  Receive Date: 20100604
  Receipt Date: 20100526
  Transmission Date: 20101027
  Serious: No
  Sender: FDA-Public Use
  Company Number: US-BIOGENIDEC-2010BI012014

PATIENT
  Age: 62 Year
  Sex: Female

DRUGS (2)
  1. TYSABRI [Suspect]
     Indication: MULTIPLE SCLEROSIS
     Route: 042
     Dates: start: 20061011, end: 20070516
  2. TYSABRI [Suspect]
     Route: 042
     Dates: start: 20091102, end: 20100126

REACTIONS (5)
  - GAIT DISTURBANCE [None]
  - HEADACHE [None]
  - INFECTION [None]
  - INFLUENZA [None]
  - PAIN [None]
